FAERS Safety Report 8025550-0 (Version None)
Quarter: 2012Q1

REPORT INFORMATION
  Report Type: 
  Country: None (occurrence: None)
  Receive Date: 20120105
  Receipt Date: 20111229
  Transmission Date: 20120608
  Serious: Yes (Other)
  Sender: FDA-Public Use
  Company Number: US-ABBOTT-11P-163-0887745-00

PATIENT
  Sex: Male
  Weight: 191.59 kg

DRUGS (7)
  1. METHAMPHETAMINE HYDROCHLORIDE [Concomitant]
     Indication: PRODUCT USED FOR UNKNOWN INDICATION
  2. VIAGRA [Suspect]
     Indication: PENILE SIZE REDUCED
     Route: 048
     Dates: start: 20110901
  3. VICODIN [Suspect]
     Indication: PRODUCT USED FOR UNKNOWN INDICATION
     Route: 048
  4. CODEINE [Suspect]
     Indication: PRODUCT USED FOR UNKNOWN INDICATION
     Route: 048
  5. OXYCONTIN [Suspect]
     Indication: PRODUCT USED FOR UNKNOWN INDICATION
     Route: 048
  6. COCAINE [Suspect]
     Indication: PRODUCT USED FOR UNKNOWN INDICATION
  7. MARIJUANA [Concomitant]
     Indication: PRODUCT USED FOR UNKNOWN INDICATION

REACTIONS (9)
  - INTENTIONAL DRUG MISUSE [None]
  - WRONG TECHNIQUE IN DRUG USAGE PROCESS [None]
  - BLOOD URINE PRESENT [None]
  - PENILE OEDEMA [None]
  - CARDIAC DISORDER [None]
  - CONVULSION [None]
  - ERECTION INCREASED [None]
  - PAINFUL ERECTION [None]
  - MYOCARDIAL INFARCTION [None]
